FAERS Safety Report 4834621-9 (Version None)
Quarter: 2005Q4

REPORT INFORMATION
  Report Type: 
  Country: None (occurrence: None)
  Receive Date: 20051122
  Receipt Date: 20051110
  Transmission Date: 20060501
  Serious: Yes (Other)
  Sender: FDA-Public Use
  Company Number: US-GLAXOSMITHKLINE-A0581833A

PATIENT
  Age: 75 Year
  Sex: Male

DRUGS (10)
  1. FLONASE [Suspect]
     Dosage: 2SPR PER DAY
     Route: 045
     Dates: start: 20050927
  2. FLU VACCINE [Concomitant]
  3. PNEUMONIA VACCINE [Concomitant]
  4. METFORMIN [Concomitant]
  5. AVANDIA [Concomitant]
  6. ACARBOSE [Concomitant]
  7. ZOCOR [Concomitant]
  8. INSULIN [Concomitant]
  9. CARVEDILOL [Concomitant]
  10. LOSARTAN POTASSIUM [Concomitant]

REACTIONS (5)
  - CHOKING [None]
  - DYSPNOEA [None]
  - EPISTAXIS [None]
  - INSOMNIA [None]
  - RHINORRHOEA [None]
